FAERS Safety Report 15159557 (Version 1)
Quarter: 2018Q3

REPORT INFORMATION
  Report Type: Spontaneous
  Country: TR (occurrence: TR)
  Receive Date: 20180718
  Receipt Date: 20180718
  Transmission Date: 20181010
  Serious: Yes (Congenital Anomaly)
  Sender: FDA-Public Use
  Company Number: PHHY2018TR042419

PATIENT

DRUGS (7)
  1. PANTOPRAZOLE [Suspect]
     Active Substance: PANTOPRAZOLE
     Indication: FOETAL EXPOSURE DURING PREGNANCY
     Route: 064
  2. TRIMEBUTINE [Suspect]
     Active Substance: TRIMEBUTINE
     Indication: FOETAL EXPOSURE DURING PREGNANCY
     Route: 064
  3. MAGNESIUM CARBONATE [Suspect]
     Active Substance: MAGNESIUM CARBONATE
     Indication: FOETAL EXPOSURE DURING PREGNANCY
     Route: 064
  4. SODIUM ALGINATE [Suspect]
     Active Substance: SODIUM ALGINATE
     Indication: FOETAL EXPOSURE DURING PREGNANCY
     Route: 064
  5. BETAHISTINE [Suspect]
     Active Substance: BETAHISTINE
     Indication: FOETAL EXPOSURE DURING PREGNANCY
     Route: 064
  6. CALCIUM CARBONATE. [Suspect]
     Active Substance: CALCIUM CARBONATE
     Indication: FOETAL EXPOSURE DURING PREGNANCY
     Route: 064
  7. PIRACETAM [Suspect]
     Active Substance: PIRACETAM
     Indication: FOETAL EXPOSURE DURING PREGNANCY
     Route: 064

REACTIONS (2)
  - Foetal exposure during pregnancy [Unknown]
  - Intestinal malrotation [Unknown]
